FAERS Safety Report 6295179-3 (Version None)
Quarter: 2009Q3

REPORT INFORMATION
  Report Type: 
  Country: None (occurrence: None)
  Receive Date: 20090730
  Receipt Date: 20090720
  Transmission Date: 20100115
  Serious: Yes (Hospitalization)
  Sender: FDA-Public Use
  Company Number: 6053156

PATIENT
  Age: 3 Month
  Sex: Male

DRUGS (2)
  1. LEVOTHYROXINE SODIUM [Suspect]
     Indication: DRUG EXPOSURE VIA BREAST MILK
     Dosage: TRANSMAMMARY
     Route: 063
  2. FLUCONAZOLE [Suspect]
     Indication: DRUG EXPOSURE VIA BREAST MILK
     Dosage: TRANSMAMMARY
     Route: 063
     Dates: start: 20090515, end: 20090614

REACTIONS (5)
  - CONSTIPATION [None]
  - DRUG EXPOSURE VIA BREAST MILK [None]
  - HYPERCALCIURIA [None]
  - HYPOSTHENURIA [None]
  - WEIGHT DECREASED [None]
